FAERS Safety Report 23350483 (Version 1)
Quarter: 2023Q4

REPORT INFORMATION
  Report Type: Spontaneous
  Country: US (occurrence: None)
  Receive Date: 20231228
  Receipt Date: 20231228
  Transmission Date: 20240110
  Serious: Yes (Disabling)
  Sender: FDA-Public Use
  Company Number: None

PATIENT
  Age: 46 Year
  Sex: Female
  Weight: 69.75 kg

DRUGS (2)
  1. AIMOVIG [Suspect]
     Active Substance: ERENUMAB-AOOE
     Indication: Migraine
     Dosage: OTHER FREQUENCY : MONTHLY;?
     Route: 030
     Dates: start: 20231205
  2. Levotyroxine [Concomitant]

REACTIONS (6)
  - Arthralgia [None]
  - Angina pectoris [None]
  - Pain in extremity [None]
  - Hemihypoaesthesia [None]
  - Muscle spasms [None]
  - Neuralgia [None]

NARRATIVE: CASE EVENT DATE: 20231205
